FAERS Safety Report 8416116-9 (Version None)
Quarter: 2012Q2

REPORT INFORMATION
  Report Type: 
  Country: None (occurrence: None)
  Receive Date: 20120530
  Receipt Date: 20120516
  Transmission Date: 20120825
  Serious: Yes (Death, Hospitalization)
  Sender: FDA-Public Use
  Company Number: 1290531

PATIENT
  Age: 67 Year
  Sex: Male
  Weight: 38.5557 kg

DRUGS (8)
  1. CISPLATIN [Suspect]
     Indication: GASTRIC CANCER
     Dosage: INTRAVENOUS (NOT OTHERWISE SPECIFIED) 120 MG MILLIGRAM(S)
     Route: 042
     Dates: start: 20111117
  2. CISPLATIN [Suspect]
     Indication: GASTRIC CANCER
     Dosage: INTRAVENOUS (NOT OTHERWISE SPECIFIED) 120 MG MILLIGRAM(S)
     Route: 042
     Dates: start: 20110922
  3. (BEVACIZUMAB) [Suspect]
     Indication: GASTRIC CANCER
     Dosage: INTRAVENOUS (NOT OTHERWISE SPECIFIED) 655 MG MILLIGRAM(S)
     Route: 042
     Dates: start: 20110922
  4. (BEVACIZUMAB) [Suspect]
     Indication: GASTRIC CANCER
     Dosage: INTRAVENOUS (NOT OTHERWISE SPECIFIED) 655 MG MILLIGRAM(S)
     Route: 042
     Dates: start: 20111117
  5. CAPECITABINE [Suspect]
     Indication: GASTRIC CANCER
     Dosage: ORAL 5250 MG MILLIGRAM(S)
     Route: 048
     Dates: start: 20110922
  6. CAPECITABINE [Suspect]
     Indication: GASTRIC CANCER
     Dosage: ORAL 5250 MG MILLIGRAM(S)
     Route: 048
     Dates: start: 20111208
  7. EPIRUBICIN HYDROCHLORIDE [Suspect]
     Indication: GASTRIC CANCER
     Dosage: INTRAVENOUS (NOT OTHERWISE SPECIFIED) 50 MILLIGRAM
     Route: 042
     Dates: start: 20110922
  8. EPIRUBICIN HYDROCHLORIDE [Suspect]
     Indication: GASTRIC CANCER
     Dosage: INTRAVENOUS (NOT OTHERWISE SPECIFIED) 50 MILLIGRAM
     Route: 042
     Dates: start: 20111117

REACTIONS (6)
  - GASTROINTESTINAL ANASTOMOTIC LEAK [None]
  - RESPIRATORY DISORDER [None]
  - DIAPHRAGMATIC HERNIA [None]
  - CARDIAC ARREST [None]
  - ATRIAL FIBRILLATION [None]
  - POST PROCEDURAL HAEMORRHAGE [None]
